FAERS Safety Report 4815132-3 (Version None)
Quarter: 2005Q4

REPORT INFORMATION
  Report Type: 
  Country: None (occurrence: None)
  Receive Date: 20051028
  Receipt Date: 20050404
  Transmission Date: 20060501
  Serious: Yes (Death)
  Sender: FDA-Public Use
  Company Number: CN-BOEHRINGER INGELHEIM PHARMACEUTICALS, INC.-2005-BP-18906BP

PATIENT

DRUGS (1)
  1. MOBIC [Suspect]

REACTIONS (1)
  - DEATH [None]
